APPROVED DRUG PRODUCT: ETODOLAC
Active Ingredient: ETODOLAC
Strength: 600MG
Dosage Form/Route: TABLET, EXTENDED RELEASE;ORAL
Application: A212263 | Product #003 | TE Code: AB
Applicant: UNICHEM LABORATORIES LTD
Approved: Nov 24, 2020 | RLD: No | RS: No | Type: RX